FAERS Safety Report 19272154 (Version 1)
Quarter: 2021Q2

REPORT INFORMATION
  Report Type: Spontaneous
  Country: US (occurrence: US)
  Receive Date: 20210519
  Receipt Date: 20210519
  Transmission Date: 20210717
  Serious: Yes (Other)
  Sender: FDA-Public Use
  Company Number: US-CIPLA LTD.-2021US03374

PATIENT

DRUGS (2)
  1. METOPROLOL. [Suspect]
     Active Substance: METOPROLOL
     Indication: BLOOD PRESSURE ABNORMAL
     Dosage: UNK
     Route: 065
     Dates: start: 2008
  2. METOPROLOL. [Suspect]
     Active Substance: METOPROLOL
     Dosage: UNK
     Route: 065
     Dates: start: 2021

REACTIONS (6)
  - Drug ineffective [Unknown]
  - Product physical issue [Unknown]
  - Therapeutic product effect variable [Unknown]
  - Palpitations [Unknown]
  - Product coating issue [Unknown]
  - Product quality issue [Unknown]

NARRATIVE: CASE EVENT DATE: 2021
